FAERS Safety Report 21161078 (Version 1)
Quarter: 2022Q3

REPORT INFORMATION
  Report Type: Other
  Country: US (occurrence: None)
  Receive Date: 20220802
  Receipt Date: 20220802
  Transmission Date: 20221026
  Serious: Yes (Other)
  Sender: FDA-Public Use
  Company Number: US-ROCHE-3145891

PATIENT
  Sex: Female

DRUGS (1)
  1. OCREVUS [Suspect]
     Active Substance: OCRELIZUMAB
     Indication: Multiple sclerosis
     Dosage: DATE OF TREATMENT: 26/MAY/2021
     Route: 042
     Dates: start: 20190404

REACTIONS (3)
  - Nephrolithiasis [Unknown]
  - Pneumonia [Unknown]
  - Cognitive disorder [Unknown]
